FAERS Safety Report 10733723 (Version 2)
Quarter: 2015Q2

REPORT INFORMATION
  Report Type: Spontaneous
  Country: JP (occurrence: JP)
  Receive Date: 20150123
  Receipt Date: 20150522
  Transmission Date: 20150821
  Serious: Yes (Other)
  Sender: FDA-Public Use
  Company Number: PHJP2015JP000477

PATIENT
  Age: 69 Year
  Sex: Male

DRUGS (1)
  1. TEGRETOL [Suspect]
     Active Substance: CARBAMAZEPINE
     Indication: PRODUCT USED FOR UNKNOWN INDICATION
     Dosage: 0.12 G, QD
     Route: 048
     Dates: end: 20150317

REACTIONS (3)
  - Dizziness [Recovered/Resolved]
  - Angina pectoris [Recovered/Resolved]
  - Gait disturbance [Recovered/Resolved]
